FAERS Safety Report 20719263 (Version 1)
Quarter: 2022Q2

REPORT INFORMATION
  Report Type: Spontaneous
  Country: US (occurrence: None)
  Receive Date: 20220415
  Receipt Date: 20220415
  Transmission Date: 20220721
  Serious: Yes (Death)
  Sender: FDA-Public Use
  Company Number: None

PATIENT
  Age: 67 Year
  Sex: Male

DRUGS (1)
  1. ESBRIET [Suspect]
     Active Substance: PIRFENIDONE
     Indication: Pulmonary arterial hypertension
     Dosage: 801 MG TID ORAL?
     Route: 048
     Dates: start: 20200911, end: 20220405

REACTIONS (2)
  - Idiopathic pulmonary fibrosis [None]
  - Pulmonary hypertension [None]

NARRATIVE: CASE EVENT DATE: 20220405
